FAERS Safety Report 25553021 (Version 1)
Quarter: 2025Q3

REPORT INFORMATION
  Report Type: Spontaneous
  Country: CN (occurrence: CN)
  Receive Date: 20250715
  Receipt Date: 20250715
  Transmission Date: 20251021
  Serious: Yes (Hospitalization, Other)
  Sender: BAXTER
  Company Number: None

PATIENT
  Age: 72 Year
  Sex: Male

DRUGS (12)
  1. CYCLOPHOSPHAMIDE [Suspect]
     Active Substance: CYCLOPHOSPHAMIDE
     Indication: Plasma cell myeloma refractory
     Dosage: 0.600000 G, QD
     Route: 042
     Dates: start: 20250522, end: 20250525
  2. CYCLOPHOSPHAMIDE [Suspect]
     Active Substance: CYCLOPHOSPHAMIDE
     Indication: Plasma cell myeloma
  3. SODIUM CHLORIDE [Suspect]
     Active Substance: SODIUM CHLORIDE
     Dosage: 100 ML, 0.9% INJECTION
     Route: 041
     Dates: start: 20250522, end: 20250525
  4. SODIUM CHLORIDE [Suspect]
     Active Substance: SODIUM CHLORIDE
     Dosage: 500 ML, 0.9% INJECTION
     Route: 041
     Dates: start: 20250522, end: 20250525
  5. SODIUM CHLORIDE [Suspect]
     Active Substance: SODIUM CHLORIDE
     Dosage: 40 ML, 0.9% INJECTION
     Route: 041
     Dates: start: 20250522, end: 20250525
  6. SODIUM CHLORIDE [Suspect]
     Active Substance: SODIUM CHLORIDE
     Dosage: 250 ML, 0.9% INJECTION
     Route: 041
     Dates: start: 20250522, end: 20250525
  7. ETOPOSIDE [Suspect]
     Active Substance: ETOPOSIDE
     Indication: Plasma cell myeloma refractory
     Dosage: 100.0000 MG, QD
     Route: 042
     Dates: start: 20250522, end: 20250525
  8. ETOPOSIDE [Suspect]
     Active Substance: ETOPOSIDE
     Indication: Plasma cell myeloma
  9. CISPLATIN [Suspect]
     Active Substance: CISPLATIN
     Indication: Plasma cell myeloma refractory
     Dosage: 20.00000 MG, QD
     Route: 042
     Dates: start: 20250522, end: 20250525
  10. CISPLATIN [Suspect]
     Active Substance: CISPLATIN
     Indication: Plasma cell myeloma
  11. DEXAMETHASONE SODIUM PHOSPHATE [Suspect]
     Active Substance: DEXAMETHASONE SODIUM PHOSPHATE
     Indication: Plasma cell myeloma refractory
     Dosage: 30.00000 MG, QD
     Route: 042
     Dates: start: 20250522, end: 20250525
  12. DEXAMETHASONE SODIUM PHOSPHATE [Suspect]
     Active Substance: DEXAMETHASONE SODIUM PHOSPHATE
     Indication: Plasma cell myeloma

REACTIONS (4)
  - Myelosuppression [Recovering/Resolving]
  - Productive cough [Unknown]
  - Oropharyngeal pain [Unknown]
  - Pyrexia [Recovered/Resolved]

NARRATIVE: CASE EVENT DATE: 20250602
